FAERS Safety Report 7370341-7 (Version None)
Quarter: 2011Q1

REPORT INFORMATION
  Report Type: 
  Country: None (occurrence: None)
  Receive Date: 20110323
  Receipt Date: 20110321
  Transmission Date: 20110831
  Serious: Yes (Hospitalization)
  Sender: FDA-Public Use
  Company Number: UA-PFIZER INC-2011038102

PATIENT
  Age: 63 Year
  Sex: Female
  Weight: 90 kg

DRUGS (14)
  1. METHYLPREDNISOLONE [Suspect]
     Dosage: 4 MG, 1X/DAY
     Route: 048
     Dates: start: 20110301
  2. BLINDED CP-690,550 [Suspect]
     Dosage: METHOTREXATE/PLACEBO, 1X/WEEK
     Route: 048
     Dates: start: 20100902
  3. BLINDED NO SUBJECT DRUG [Suspect]
     Dosage: METHOTREXATE/PLACEBO, 1X/WEEK
     Route: 048
     Dates: start: 20100902
  4. METHYLPREDNISOLONE [Suspect]
     Dosage: UNK
  5. BLINDED METHOTREXATE SODIUM [Suspect]
     Dosage: METHOTREXATE/PLACEBO, 1X/WEEK
     Route: 048
     Dates: start: 20100902
  6. BLINDED CP-690,550 [Suspect]
     Indication: RHEUMATOID ARTHRITIS
     Dosage: CP-690,550/PLACEBO, 2X/DAY
     Route: 048
     Dates: start: 20100902
  7. DICLOFENAC [Suspect]
     Indication: RHEUMATOID ARTHRITIS
     Dosage: 100 MG, 1X/DAY
     Route: 048
     Dates: start: 20100601, end: 20110218
  8. BLINDED PLACEBO [Suspect]
     Indication: RHEUMATOID ARTHRITIS
     Dosage: CP-690,550/PLACEBO, 2X/DAY
     Route: 048
     Dates: start: 20100902
  9. BLINDED PLACEBO [Suspect]
     Dosage: METHOTREXATE/PLACEBO, 1X/WEEK
     Route: 048
     Dates: start: 20100902
  10. METHYLPREDNISOLONE [Suspect]
     Indication: RHEUMATOID ARTHRITIS
     Dosage: 6 MG, 1X/DAY
     Route: 048
     Dates: start: 20101126, end: 20110228
  11. FOLIC ACID [Concomitant]
     Indication: RHEUMATOID ARTHRITIS
     Dosage: 2.5 MG, 4X/WEEK
     Route: 048
     Dates: start: 20100904
  12. ATORVASTATIN [Concomitant]
     Indication: DYSLIPIDAEMIA
     Dosage: 20 MG, 1X/DAY
     Route: 048
     Dates: start: 20101214
  13. BLINDED METHOTREXATE SODIUM [Suspect]
     Indication: RHEUMATOID ARTHRITIS
     Dosage: CP-690,550/PLACEBO, 2X/DAY
     Route: 048
     Dates: start: 20100902
  14. BLINDED NO SUBJECT DRUG [Suspect]
     Indication: RHEUMATOID ARTHRITIS
     Dosage: CP-690,550/PLACEBO, 2X/DAY
     Route: 048
     Dates: start: 20100902

REACTIONS (2)
  - CORONARY ARTERY DISEASE [None]
  - ANGINA PECTORIS [None]
